FAERS Safety Report 7744357-2 (Version None)
Quarter: 2011Q3

REPORT INFORMATION
  Report Type: 
  Country: None (occurrence: None)
  Receive Date: 20110912
  Receipt Date: 20110831
  Transmission Date: 20111222
  Serious: Yes (Other)
  Sender: FDA-Public Use
  Company Number: US-CELGENEUS-163-21880-11090126

PATIENT
  Sex: Female
  Weight: 59.02 kg

DRUGS (9)
  1. ASPIRIN [Concomitant]
     Route: 065
  2. LEXAPRO [Concomitant]
     Route: 065
  3. REVLIMID [Suspect]
     Indication: MULTIPLE MYELOMA
     Dosage: 15 MILLIGRAM
     Route: 048
     Dates: start: 20110701
  4. PRAVASTATIN [Concomitant]
     Route: 065
  5. DEXAMETHASONE [Concomitant]
     Route: 065
  6. ZANTAC [Concomitant]
     Route: 065
  7. PLAVIX [Concomitant]
     Route: 065
  8. OMEPRAZOLE [Concomitant]
     Route: 065
  9. VITAMIN D [Concomitant]
     Route: 065

REACTIONS (1)
  - INTERVERTEBRAL DISC PROTRUSION [None]
